FAERS Safety Report 5822699-5 (Version None)
Quarter: 2008Q3

REPORT INFORMATION
  Report Type: 
  Country: None (occurrence: None)
  Receive Date: 20080721
  Receipt Date: 20080705
  Transmission Date: 20090109
  Serious: Yes (Other)
  Sender: FDA-Public Use
  Company Number: JPI-P-004136

PATIENT
  Age: 35 Year
  Sex: Female

DRUGS (6)
  1. LUVOX CR [Suspect]
     Indication: DEPRESSION
     Dosage: 75 MG (75 MG,1 IN 1 D),ORAL;  50 MG (50 MG, 1 IN 1 D),ORAL
     Route: 048
     Dates: start: 20080602, end: 20080623
  2. LUVOX CR [Suspect]
     Indication: DEPRESSION
     Dosage: 75 MG (75 MG,1 IN 1 D),ORAL;  50 MG (50 MG, 1 IN 1 D),ORAL
     Route: 048
     Dates: start: 20080624, end: 20080627
  3. BROMAZEPAM (BROMAZEPAM) [Concomitant]
  4. DOMPERIDONE (DOMPERIDONE) [Concomitant]
  5. TRIAZOLAM [Concomitant]
  6. ETIZOLAM (ETIZOLAM) [Concomitant]

REACTIONS (3)
  - ACTIVATION SYNDROME [None]
  - ANXIETY [None]
  - SELF INJURIOUS BEHAVIOUR [None]
